FAERS Safety Report 19070672 (Version 1)
Quarter: 2021Q1

REPORT INFORMATION
  Report Type: Spontaneous
  Country: US (occurrence: US)
  Receive Date: 20210330
  Receipt Date: 20210330
  Transmission Date: 20210420
  Serious: Yes (Death)
  Sender: FDA-Public Use
  Company Number: US-FARMAPROD-202103-0397

PATIENT
  Sex: Male

DRUGS (21)
  1. VITAMIN B12 [Concomitant]
     Active Substance: CYANOCOBALAMIN
  2. METFORMIN ER GASTRIC [Concomitant]
  3. CLOPIDOGREL [Concomitant]
     Active Substance: CLOPIDOGREL BISULFATE
  4. TYLENOL EXTRA STRENGTH [Concomitant]
     Active Substance: ACETAMINOPHEN
  5. DOXYCYCLINE MONOHYDRATE [Concomitant]
     Active Substance: DOXYCYCLINE
  6. ATORVASTATIN CALCIUM. [Concomitant]
     Active Substance: ATORVASTATIN CALCIUM
  7. DIGOXIN. [Concomitant]
     Active Substance: DIGOXIN
  8. OXERVATE [Suspect]
     Active Substance: CENEGERMIN-BKBJ
     Indication: NEUROTROPHIC KERATOPATHY
     Route: 047
     Dates: start: 20200901, end: 20201027
  9. FAMOTIDINE. [Concomitant]
     Active Substance: FAMOTIDINE
  10. LASIX [Concomitant]
     Active Substance: FUROSEMIDE
  11. METOPROLOL SUCCINATE. [Concomitant]
     Active Substance: METOPROLOL SUCCINATE
  12. BLINK GEL TEARS [Concomitant]
     Active Substance: POLYETHYLENE GLYCOL 400
  13. ZALEPLON. [Concomitant]
     Active Substance: ZALEPLON
  14. SPIRONOLACTONE. [Concomitant]
     Active Substance: SPIRONOLACTONE
  15. SENNA [Concomitant]
     Active Substance: SENNA LEAF\SENNOSIDES\SENNOSIDES A AND B
  16. PANTOPRAZOLE SODIUM. [Concomitant]
     Active Substance: PANTOPRAZOLE SODIUM
     Dosage: DELAY RELEASE TABLET
  17. NOVOLOG [Concomitant]
     Active Substance: INSULIN ASPART
     Dosage: 100/ML CARTRIDGE
  18. ELIQUIS [Concomitant]
     Active Substance: APIXABAN
  19. MOXIFLOXACIN. [Concomitant]
     Active Substance: MOXIFLOXACIN
  20. METHAZOLAMIDE. [Concomitant]
     Active Substance: METHAZOLAMIDE
  21. VALTREX [Concomitant]
     Active Substance: VALACYCLOVIR HYDROCHLORIDE

REACTIONS (1)
  - Death [Fatal]
